FAERS Safety Report 5841950-9 (Version None)
Quarter: 2008Q3

REPORT INFORMATION
  Report Type: 
  Country: None (occurrence: None)
  Receive Date: 20080812
  Receipt Date: 20000623
  Transmission Date: 20090109
  Serious: Yes (Death)
  Sender: FDA-Public Use
  Company Number: US-MERCK-99092262

PATIENT

DRUGS (2)
  1. SINGULAIR [Suspect]
     Indication: ASTHMA
     Route: 064
  2. PROVENTIL [Concomitant]
     Route: 064

REACTIONS (1)
  - ABORTION SPONTANEOUS [None]
